FAERS Safety Report 12737283 (Version 3)
Quarter: 2016Q4

REPORT INFORMATION
  Report Type: Report from Study
  Country: JP (occurrence: JP)
  Receive Date: 20160913
  Receipt Date: 20161028
  Transmission Date: 20170207
  Serious: Yes (Other)
  Sender: FDA-Public Use
  Company Number: JP-OTSUKA-2016_021530

PATIENT
  Age: 51 Year
  Sex: Male
  Weight: 64.7 kg

DRUGS (6)
  1. *CLOPIDOGREL [Suspect]
     Active Substance: CLOPIDOGREL BISULFATE
     Indication: ISCHAEMIC STROKE
     Dosage: 75 MG, QD
     Route: 048
     Dates: start: 20151211, end: 20160311
  2. CILOSTAZOL. [Suspect]
     Active Substance: CILOSTAZOL
     Indication: ISCHAEMIC STROKE
     Dosage: 200 MG, DAILY DOSE (DIVIDED INTO 2 DOSES)
     Route: 048
     Dates: start: 20151211, end: 20160311
  3. LIPID MODIFYING AGENTS [Concomitant]
     Active Substance: UNSPECIFIED INGREDIENT
     Indication: HYPERLIPIDAEMIA
     Dosage: UNK
     Route: 065
  4. CALCIUM CHANNEL BLOCKERS [Concomitant]
     Active Substance: UNSPECIFIED INGREDIENT
     Indication: HYPERTENSION
     Dosage: UNK
     Route: 065
  5. ACE INHIBITORS [Concomitant]
     Active Substance: UNSPECIFIED INGREDIENT
     Indication: HYPERTENSION
     Dosage: UNK
     Route: 065
  6. INSULIN [Concomitant]
     Active Substance: INSULIN NOS
     Indication: DIABETES MELLITUS
     Dosage: UNK
     Route: 065

REACTIONS (1)
  - Chronic kidney disease [Recovering/Resolving]

NARRATIVE: CASE EVENT DATE: 20160227
